FAERS Safety Report 8600509-0 (Version None)
Quarter: 2012Q3

REPORT INFORMATION
  Report Type: 
  Country: None (occurrence: None)
  Receive Date: 20120817
  Receipt Date: 20120808
  Transmission Date: 20120928
  Serious: Yes (Hospitalization)
  Sender: FDA-Public Use
  Company Number: US-BAYER-2012-043122

PATIENT
  Age: 36 Year
  Sex: Female
  Weight: 69.841 kg

DRUGS (11)
  1. LEVOTHYROXINE SODIUM [Concomitant]
     Indication: THYROID DISORDER
     Dosage: 50 MCG/DAY DAILY BEFORE BREAKFAST ON AN EMPTY STOMACH
     Route: 048
     Dates: start: 20101101
  2. IBUPROFEN [Concomitant]
     Dosage: 800 MG EVERY 8 HOURS AS NEEDED
     Route: 048
  3. DROSPIRENONE AND ETHINYL ESTRADIOL [Suspect]
     Indication: CONTRACEPTION
  4. ASPIRIN [Concomitant]
     Dosage: 162 MG
     Route: 048
  5. CLINDAMYCIN [Concomitant]
     Dosage: 1% LOTION 60 ML, EVERY MORNING
     Route: 061
     Dates: start: 20111115
  6. TORADOL [Concomitant]
  7. TRIAMCINOLONE [Concomitant]
     Dosage: 55 ?G SPRAY
     Route: 045
  8. DROSPIRENONE AND ETHINYL ESTRADIOL [Suspect]
     Indication: ACNE
     Dosage: UNK
     Dates: start: 20101201, end: 20120101
  9. DROSPIRENONE AND ETHINYL ESTRADIOL [Suspect]
     Indication: MENSTRUAL CYCLE MANAGEMENT
  10. YAZ [Suspect]
     Indication: ACNE
     Dosage: UNK
     Dates: start: 20101011, end: 20120105
  11. VALACICLOVIR [Concomitant]
     Indication: VIRAL INFECTION
     Dosage: 1 GM TABLETS, TAKE 1 TABLET TWICE DAILY FOR 2 DAYS
     Route: 048

REACTIONS (8)
  - PULMONARY EMBOLISM [None]
  - GENERAL PHYSICAL HEALTH DETERIORATION [None]
  - PAINFUL RESPIRATION [None]
  - INJURY [None]
  - MUSCLE SPASMS [None]
  - EMOTIONAL DISTRESS [None]
  - PAIN [None]
  - DYSPNOEA [None]
